FAERS Safety Report 5754499-9 (Version None)
Quarter: 2008Q2

REPORT INFORMATION
  Report Type: 
  Country: None (occurrence: None)
  Receive Date: 20080530
  Receipt Date: 20080523
  Transmission Date: 20081010
  Serious: No
  Sender: FDA-Public Use
  Company Number: US-BOEHRINGER INGELHEIM GMBH, GERMANY-2008-BP-08063BP

PATIENT
  Sex: Female

DRUGS (6)
  1. SPIRIVA [Suspect]
     Indication: CHRONIC OBSTRUCTIVE PULMONARY DISEASE
     Route: 055
     Dates: start: 20080401
  2. OXYGEN [Concomitant]
  3. FORADIL [Concomitant]
  4. B/P MEDS (UNSPECIFIED) [Concomitant]
     Indication: BLOOD PRESSURE
  5. THYROID TAB [Concomitant]
  6. COMBIVENT [Concomitant]

REACTIONS (2)
  - DIARRHOEA [None]
  - FREQUENT BOWEL MOVEMENTS [None]
